FAERS Safety Report 19761222 (Version 1)
Quarter: 2021Q3

REPORT INFORMATION
  Report Type: Spontaneous
  Country: GB (occurrence: GB)
  Receive Date: 20210827
  Receipt Date: 20210827
  Transmission Date: 20211014
  Serious: No
  Sender: FDA-Public Use
  Company Number: GB-MYLANLABS-2021M1055852

PATIENT
  Sex: Male

DRUGS (2)
  1. EPIPEN JR [Suspect]
     Active Substance: EPINEPHRINE
     Dosage: UNK
  2. EPIPEN JR [Suspect]
     Active Substance: EPINEPHRINE
     Indication: PRODUCT USED FOR UNKNOWN INDICATION
     Dosage: UNK

REACTIONS (2)
  - Product quality issue [None]
  - Liquid product physical issue [None]
